FAERS Safety Report 4598199-X (Version None)
Quarter: 2005Q1

REPORT INFORMATION
  Report Type: 
  Country: None (occurrence: None)
  Receive Date: 20050304
  Receipt Date: 20050222
  Transmission Date: 20050727
  Serious: Yes (Disabling)
  Sender: FDA-Public Use
  Company Number: FR-BRISTOL-MYERS SQUIBB COMPANY-12879227

PATIENT
  Age: 43 Year
  Sex: Male

DRUGS (5)
  1. STAVUDINE [Suspect]
     Indication: HIV INFECTION
  2. NEVIRAPINE [Suspect]
     Indication: HIV INFECTION
  3. NELFINAVIR [Suspect]
     Indication: HIV INFECTION
  4. INDOMETHACIN [Concomitant]
     Indication: SPONDYLITIS
  5. ACETAMINOPHEN AND CODEINE PHOSPHATE [Concomitant]
     Indication: SPONDYLITIS

REACTIONS (1)
  - OSTEONECROSIS [None]
